FAERS Safety Report 6890729-8 (Version None)
Quarter: 2010Q3

REPORT INFORMATION
  Report Type: 
  Country: None (occurrence: None)
  Receive Date: 20100731
  Receipt Date: 20090303
  Transmission Date: 20110219
  Serious: No
  Sender: FDA-Public Use
  Company Number: US-PFIZER INC-2008094200

PATIENT
  Sex: Female
  Weight: 52.16 kg

DRUGS (7)
  1. LIPITOR [Suspect]
     Dosage: 5 MG, 1X/DAY
     Route: 048
  2. INSULIN [Concomitant]
  3. FOSAMAX [Concomitant]
  4. BENICAR [Concomitant]
     Indication: BLOOD PRESSURE ABNORMAL
  5. SYNTHROID [Concomitant]
     Indication: THYROID DISORDER
  6. ISOSORBIDE [Concomitant]
  7. VITAMINS [Concomitant]

REACTIONS (2)
  - CHEST PAIN [None]
  - WRONG TECHNIQUE IN DRUG USAGE PROCESS [None]
